FAERS Safety Report 19706218 (Version 1)
Quarter: 2021Q3

REPORT INFORMATION
  Report Type: Spontaneous
  Country: ES (occurrence: ES)
  Receive Date: 20210817
  Receipt Date: 20210817
  Transmission Date: 20211014
  Serious: Yes (Other)
  Sender: FDA-Public Use
  Company Number: ES-AMGEN-ESPSP2021126542

PATIENT
  Age: 47 Year
  Sex: Female

DRUGS (1)
  1. AIMOVIG [Suspect]
     Active Substance: ERENUMAB-AOOE
     Indication: MIGRAINE
     Dosage: 140 MILLIGRAM, Q4WK (EVERY 04 WEEK
     Route: 030
     Dates: start: 20210423, end: 20210521

REACTIONS (2)
  - Memory impairment [Recovering/Resolving]
  - Fumbling [Recovering/Resolving]

NARRATIVE: CASE EVENT DATE: 20210423
